FAERS Safety Report 10977490 (Version 1)
Quarter: 2015Q1

REPORT INFORMATION
  Report Type: Spontaneous
  Country: PL (occurrence: None)
  Receive Date: 20150330
  Receipt Date: 20150330
  Transmission Date: 20150721
  Serious: No
  Sender: FDA-Public Use
  Company Number: 20150795

PATIENT
  Sex: Female

DRUGS (1)
  1. METEX (METHOTREXATE) [Suspect]
     Active Substance: METHOTREXATE
     Dates: start: 201412

REACTIONS (13)
  - Oedema peripheral [None]
  - Vaginal discharge [None]
  - Somnolence [None]
  - Visual impairment [None]
  - Nasal dryness [None]
  - Cough [None]
  - General physical health deterioration [None]
  - Arthralgia [None]
  - Myalgia [None]
  - Fatigue [None]
  - Vasodilatation [None]
  - Headache [None]
  - Contusion [None]
